FAERS Safety Report 18447341 (Version 1)
Quarter: 2020Q4

REPORT INFORMATION
  Report Type: Spontaneous
  Country: PL (occurrence: PL)
  Receive Date: 20201030
  Receipt Date: 20201030
  Transmission Date: 20210114
  Serious: Yes (Other)
  Sender: FDA-Public Use
  Company Number: NVSC2020PL292383

PATIENT
  Age: 11 Year
  Sex: Male

DRUGS (6)
  1. ETOPOSIDE. [Suspect]
     Active Substance: ETOPOSIDE
     Indication: RECURRENT CANCER
  2. HOLOXAN [Suspect]
     Active Substance: IFOSFAMIDE
     Indication: RECURRENT CANCER
     Dosage: CYCLIC (ICE REGIMEN 2 CYCLES)
     Route: 065
  3. CARBOPLATIN. [Suspect]
     Active Substance: CARBOPLATIN
     Indication: RECURRENT CANCER
  4. HOLOXAN [Suspect]
     Active Substance: IFOSFAMIDE
     Indication: NEPHROBLASTOMA
  5. CARBOPLATIN. [Suspect]
     Active Substance: CARBOPLATIN
     Indication: NEPHROBLASTOMA
     Dosage: CYCLIC ICE REGIMEN 2 CYCLES
     Route: 065
  6. ETOPOSIDE. [Suspect]
     Active Substance: ETOPOSIDE
     Indication: NEPHROBLASTOMA
     Dosage: UNK UNK, CYCLIC ICE REGIMEN 2 CYCLES
     Route: 065

REACTIONS (1)
  - Hepatotoxicity [Unknown]
